FAERS Safety Report 13462600 (Version 12)
Quarter: 2018Q1

REPORT INFORMATION
  Report Type: Report from Study
  Country: JP (occurrence: JP)
  Receive Date: 20170420
  Receipt Date: 20180303
  Transmission Date: 20180508
  Serious: Yes (Death, Hospitalization, Other)
  Sender: FDA-Public Use
  Company Number: PHJP2017JP012336

PATIENT
  Age: 69 Year
  Sex: Female

DRUGS (6)
  1. MEKINIST [Suspect]
     Active Substance: TRAMETINIB DIMETHYL SULFOXIDE
     Indication: MALIGNANT MELANOMA STAGE IV
     Dosage: 2 MG, QD
     Route: 048
     Dates: start: 20161020, end: 20161104
  2. TAFINLAR [Suspect]
     Active Substance: DABRAFENIB MESYLATE
     Dosage: 100 MG, QD
     Route: 048
     Dates: start: 20161117, end: 20161214
  3. NIVOLUMAB [Suspect]
     Active Substance: NIVOLUMAB
     Indication: MALIGNANT MELANOMA STAGE IV
     Dosage: UNK
     Route: 065
  4. MEKINIST [Suspect]
     Active Substance: TRAMETINIB DIMETHYL SULFOXIDE
     Dosage: 1.5 MG, QD
     Route: 048
     Dates: start: 20161117, end: 20170321
  5. TAFINLAR [Suspect]
     Active Substance: DABRAFENIB MESYLATE
     Indication: MALIGNANT MELANOMA STAGE IV
     Dosage: 100 MG, QD
     Route: 048
     Dates: start: 20161006, end: 20161104
  6. TAFINLAR [Suspect]
     Active Substance: DABRAFENIB MESYLATE
     Dosage: 100 MG, QD
     Route: 048
     Dates: start: 20170105, end: 20170321

REACTIONS (15)
  - Metastasis [Fatal]
  - Vascular rupture [Fatal]
  - Pyrexia [Recovered/Resolved]
  - Infection [Unknown]
  - Metastases to bone [Fatal]
  - Malignant melanoma [Fatal]
  - Fracture [Recovering/Resolving]
  - Cardio-respiratory arrest [Fatal]
  - Metastases to central nervous system [Fatal]
  - Pyrexia [Unknown]
  - Malignant neoplasm progression [Fatal]
  - Gait disturbance [Fatal]
  - Hepatic function abnormal [Recovered/Resolved]
  - Pyelonephritis [Recovered/Resolved]
  - Hypokalaemia [Not Recovered/Not Resolved]

NARRATIVE: CASE EVENT DATE: 20161020
